FAERS Safety Report 18491747 (Version 2)
Quarter: 2020Q4

REPORT INFORMATION
  Report Type: Spontaneous
  Country: JP (occurrence: JP)
  Receive Date: 20201111
  Receipt Date: 20201124
  Transmission Date: 20210114
  Serious: Yes (Death)
  Sender: FDA-Public Use
  Company Number: JP-ELI_LILLY_AND_COMPANY-JP202011002525

PATIENT
  Age: 69 Year
  Sex: Male
  Weight: 68 kg

DRUGS (9)
  1. POLAPREZINC [Concomitant]
     Active Substance: POLAPREZINC
  2. FUROSEMIDE. [Concomitant]
     Active Substance: FUROSEMIDE
  3. REBAMIPIDE [Concomitant]
     Active Substance: REBAMIPIDE
  4. LOXOPROFEN [Concomitant]
     Active Substance: LOXOPROFEN
  5. TAKECAB [Concomitant]
     Active Substance: VONOPRAZAN FUMARATE
  6. CAMOSTAT MESILATE [Concomitant]
     Active Substance: CAMOSTAT MESYLATE
  7. DOCETAXEL. [Suspect]
     Active Substance: DOCETAXEL
     Indication: LUNG ADENOCARCINOMA
     Dosage: 100 MG, OTHER
     Route: 041
     Dates: start: 20191108, end: 20200420
  8. VOGLIBOSE [Concomitant]
     Active Substance: VOGLIBOSE
  9. CYRAMZA [Suspect]
     Active Substance: RAMUCIRUMAB
     Indication: LUNG ADENOCARCINOMA
     Dosage: 664 MG, OTHER
     Route: 041
     Dates: start: 20191108, end: 20200420

REACTIONS (1)
  - Interstitial lung disease [Fatal]
